FAERS Safety Report 18998752 (Version 1)
Quarter: 2021Q1

REPORT INFORMATION
  Report Type: Spontaneous
  Country: US (occurrence: US)
  Receive Date: 20210311
  Receipt Date: 20210311
  Transmission Date: 20210420
  Serious: Yes (Other)
  Sender: FDA-Public Use
  Company Number: US-UPSHER-SMITH LABORATORIES, LLC-2021USL00207

PATIENT
  Sex: Female

DRUGS (1)
  1. AMIODARONE HYDROCHLORIDE. [Suspect]
     Active Substance: AMIODARONE HYDROCHLORIDE
     Indication: ATRIAL FIBRILLATION
     Dosage: UNK
     Route: 048
     Dates: start: 201503

REACTIONS (8)
  - Lung disorder [Unknown]
  - Off label use [Unknown]
  - Cataract [Unknown]
  - Extraocular muscle disorder [Unknown]
  - Vision blurred [Unknown]
  - Deposit eye [Unknown]
  - Blindness [Unknown]
  - Dry eye [Unknown]

NARRATIVE: CASE EVENT DATE: 201503
